FAERS Safety Report 15455994 (Version 1)
Quarter: 2018Q4

REPORT INFORMATION
  Report Type: Report from Study
  Country: NL (occurrence: NL)
  Receive Date: 20181002
  Receipt Date: 20181002
  Transmission Date: 20190204
  Serious: Yes (Other)
  Sender: FDA-Public Use
  Company Number: NL-PFIZER INC-2018390027

PATIENT
  Sex: Female

DRUGS (5)
  1. TRILEPTAL [Concomitant]
     Active Substance: OXCARBAZEPINE
  2. LAMICTAL [Concomitant]
     Active Substance: LAMOTRIGINE
  3. LEVETIRACETAM PFIZER [Suspect]
     Active Substance: LEVETIRACETAM
     Dosage: UNK
  4. RIVOTRIL [Concomitant]
     Active Substance: CLONAZEPAM
  5. STESOLID [Concomitant]
     Active Substance: DIAZEPAM

REACTIONS (4)
  - Partial seizures [Unknown]
  - Hepatic failure [Unknown]
  - Amnesia [Unknown]
  - Anger [Unknown]
